FAERS Safety Report 6358993-1 (Version None)
Quarter: 2009Q3

REPORT INFORMATION
  Report Type: 
  Country: None (occurrence: None)
  Receive Date: 20090914
  Receipt Date: 20090827
  Transmission Date: 20100115
  Serious: Yes (Hospitalization)
  Sender: FDA-Public Use
  Company Number: 2006S1000207

PATIENT
  Age: 37 Year
  Sex: Female

DRUGS (2)
  1. SORIATANE [Suspect]
     Indication: PSORIASIS
     Dosage: PO
     Route: 048
     Dates: start: 20021201, end: 20030701
  2. METHOXSALEN [Suspect]
     Indication: PSORIASIS
     Dosage: 10 MG; QD
     Dates: start: 20050501, end: 20050501

REACTIONS (3)
  - ABORTION INDUCED [None]
  - DRUG EXPOSURE DURING PREGNANCY [None]
  - PREGNANCY [None]
